FAERS Safety Report 19704527 (Version 1)
Quarter: 2021Q3

REPORT INFORMATION
  Report Type: Other
  Country: US (occurrence: US)
  Receive Date: 20210816
  Receipt Date: 20210816
  Transmission Date: 20211014
  Serious: Yes (Other)
  Sender: FDA-Public Use
  Company Number: US-ROCHE-2883550

PATIENT
  Age: 59 Year
  Sex: Female
  Weight: 77.18 kg

DRUGS (3)
  1. PFIZER?BIONTECH COVID?19 VACCINE [Suspect]
     Active Substance: TOZINAMERAN
     Indication: PRODUCT USED FOR UNKNOWN INDICATION
     Route: 065
  2. OCREVUS [Suspect]
     Active Substance: OCRELIZUMAB
     Route: 042
     Dates: start: 2020
  3. OCREVUS [Suspect]
     Active Substance: OCRELIZUMAB
     Indication: RELAPSING-REMITTING MULTIPLE SCLEROSIS
     Route: 042
     Dates: start: 202006

REACTIONS (6)
  - Demyelination [Unknown]
  - Blood immunoglobulin G decreased [Not Recovered/Not Resolved]
  - Antibody test negative [Not Recovered/Not Resolved]
  - Decreased immune responsiveness [Not Recovered/Not Resolved]
  - Blood immunoglobulin M decreased [Not Recovered/Not Resolved]
  - SARS-CoV-2 test negative [Not Recovered/Not Resolved]

NARRATIVE: CASE EVENT DATE: 20210721
